FAERS Safety Report 8552242-1 (Version None)
Quarter: 2012Q3

REPORT INFORMATION
  Report Type: 
  Country: None (occurrence: None)
  Receive Date: 20120731
  Receipt Date: 20120430
  Transmission Date: 20120928
  Serious: Yes (Death, Other)
  Sender: FDA-Public Use
  Company Number: US-BAYER-2012-041777

PATIENT
  Age: 14 Year
  Sex: Female
  Weight: 91 kg

DRUGS (26)
  1. NITROFURANTOIN [Concomitant]
  2. ALBUTEROL [Concomitant]
  3. CERON-DM SYRUP (CHLORPHENIRAMINE MALEATE, PHENYLEPHRINE HYDROCHLOR [Concomitant]
  4. PREDNISONE TAB [Concomitant]
  5. MAXALT-MLT [Concomitant]
     Dosage: 5 MG, PRN
  6. PROVENTIL-HFA [Concomitant]
     Dosage: 90 MCG, QID
  7. ADVAIR DISKUS 100/50 [Concomitant]
  8. CONCERTA [Concomitant]
     Dosage: 27 MG, QD
  9. PHENERGAN HCL [Concomitant]
     Dosage: 25 MG, EVERY 6 HOURS
     Route: 048
  10. AMITRIPTYLINE HYDROCHLORIDE [Concomitant]
     Dosage: 50 MG, QD
  11. FLONASE [Concomitant]
     Dosage: 50 MCG/24HR, QD
  12. HYDROCODONE BITARTRATE AND ACETAMINOPHEN [Concomitant]
  13. DROSPIRENONE AND ETHINYL ESTRADIOL [Suspect]
     Dosage: UNK
     Dates: start: 20100101, end: 20100501
  14. ANTI-ASTHMATICS [Concomitant]
     Dosage: UNK
     Dates: start: 20060101, end: 20100516
  15. NSAID'S [Concomitant]
     Dosage: UNK UNK, PRN
  16. ANTIBIOTICS [Concomitant]
     Dosage: UNK UNK, PRN
  17. PERMETHRIN [Concomitant]
  18. PROAIR HFA [Concomitant]
  19. PROMETHAZINE [Concomitant]
  20. VICODIN [Concomitant]
     Dosage: 5/500 MG, EVERY 4-6 HOURS
  21. SINGULAIR [Concomitant]
  22. MOBIC [Concomitant]
     Dosage: 7.5 MG, BID
  23. OMEPRAZOLE [Concomitant]
  24. CICLOPIROX [Concomitant]
  25. ZYRTEC [Concomitant]
  26. AZITHROMYCIN [Concomitant]

REACTIONS (3)
  - PULMONARY EMBOLISM [None]
  - PULMONARY INFARCTION [None]
  - DEEP VEIN THROMBOSIS [None]
